FAERS Safety Report 9536380 (Version 1)
Quarter: 2013Q2

REPORT INFORMATION
  Report Type: Spontaneous
  Country: US (occurrence: None)
  Receive Date: 20130507
  Receipt Date: 20130507
  Transmission Date: 20140414
  Serious: Yes (Hospitalization)
  Sender: FDA-Public Use
  Company Number: PHEH2012US023931

PATIENT
  Age: 60 Year
  Sex: Male

DRUGS (13)
  1. AFINITOR (RAD) [Suspect]
     Indication: RENAL CANCER
     Route: 048
     Dates: start: 20121009
  2. NYSTATIN [Concomitant]
  3. ONDANSETRON [Concomitant]
  4. CALCITROL [Concomitant]
  5. POTASSIUM CHLORIDE [Concomitant]
  6. FLUOROCAINE (FLUORESCEIN) [Concomitant]
  7. VANCOMYCIN [Concomitant]
  8. EPOGEN (EPOETIN ALFA) [Concomitant]
  9. VITAMIN D3 (COLECALCIFEROL) [Concomitant]
  10. SANDOSTATIN (OCRETOTIDE ACETATE) [Concomitant]
  11. OMEGA 3 (FISH OIL) [Concomitant]
  12. COLACE [Concomitant]
  13. AENOMI (CALCIUM PANTOTHENATE, NICOTINAMIDE, PHOSPHORYLCHOLINE CALCIUM PYRIDOXINE HYDROCHLORIDE, RIBOFLAVIN, THIAMINE DSULFIDE) [Concomitant]

REACTIONS (1)
  - Blood glucose increased [None]
